FAERS Safety Report 14339631 (Version 1)
Quarter: 2017Q4

REPORT INFORMATION
  Report Type: Spontaneous
  Country: GB (occurrence: GB)
  Receive Date: 20171230
  Receipt Date: 20171230
  Transmission Date: 20180321
  Serious: Yes (Other)
  Sender: FDA-Public Use
  Company Number: GB-AUROBINDO-AUR-APL-2017-48435

PATIENT

DRUGS (1)
  1. EFAVIRENZ FILM-COATED TABLET [Suspect]
     Active Substance: EFAVIRENZ
     Indication: PRODUCT USED FOR UNKNOWN INDICATION
     Dosage: UNK
     Route: 048

REACTIONS (11)
  - Stevens-Johnson syndrome [Unknown]
  - Psychotic disorder [Unknown]
  - Fatigue [Unknown]
  - Enuresis [Unknown]
  - Mood altered [Unknown]
  - Headache [Unknown]
  - Disturbance in attention [Unknown]
  - Hypercholesterolaemia [Unknown]
  - Gynaecomastia [Unknown]
  - Sleep disorder [Unknown]
  - Virologic failure [Unknown]
